FAERS Safety Report 9082568 (Version 1)
Quarter: 2013Q1

REPORT INFORMATION
  Report Type: Report from Study
  Country: US (occurrence: US)
  Receive Date: 20130130
  Receipt Date: 20130130
  Transmission Date: 20140127
  Serious: Yes (Other)
  Sender: FDA-Public Use
  Company Number: US-ABBOTT-12P-163-0956305-00

PATIENT
  Age: 30 Year
  Sex: Female
  Weight: 49.94 kg

DRUGS (6)
  1. HUMIRA 40 MG/ 0.8 ML PRE-FILLED SYRINGE [Suspect]
     Indication: CROHN^S DISEASE
     Route: 050
     Dates: start: 20110509, end: 20120107
  2. PRENATAL VITAMIN NOS [Concomitant]
     Indication: PRODUCT USED FOR UNKNOWN INDICATION
     Route: 048
     Dates: start: 20110509, end: 20120213
  3. FISH OIL [Concomitant]
     Indication: PRODUCT USED FOR UNKNOWN INDICATION
     Route: 048
     Dates: start: 20110509, end: 20120213
  4. IRON [Concomitant]
     Indication: PRODUCT USED FOR UNKNOWN INDICATION
     Dosage: 1.5 PILLS DAILY
     Route: 048
     Dates: start: 20110509, end: 20120213
  5. FLU VACCINE NOS [Concomitant]
     Indication: PRODUCT USED FOR UNKNOWN INDICATION
     Dosage: 1 SHOT TOTAL
     Route: 050
     Dates: start: 20110509, end: 20120213
  6. DHA [Concomitant]
     Indication: PRODUCT USED FOR UNKNOWN INDICATION
     Route: 048
     Dates: start: 20110509, end: 20120213

REACTIONS (4)
  - Abscess [Unknown]
  - Respiratory tract infection [Unknown]
  - Skin irritation [Unknown]
  - Nasopharyngitis [Unknown]
